FAERS Safety Report 9124567 (Version 2)
Quarter: 2013Q1

REPORT INFORMATION
  Report Type: Spontaneous
  Country: CA (occurrence: CA)
  Receive Date: 20130116
  Receipt Date: 20130227
  Transmission Date: 20140127
  Serious: Yes (Other)
  Sender: FDA-Public Use
  Company Number: PHHY2011CA17139

PATIENT
  Age: 84 Year
  Sex: Female

DRUGS (5)
  1. ACLASTA [Suspect]
     Indication: OSTEOPOROSIS
     Dosage: UNK
     Route: 042
     Dates: start: 20090127
  2. ACLASTA [Suspect]
     Dosage: UNK
     Route: 042
     Dates: start: 20100216
  3. ACLASTA [Suspect]
     Dosage: UNK
     Route: 042
     Dates: start: 20110217
  4. ACLASTA [Suspect]
     Dosage: UNK
     Route: 042
     Dates: start: 20120216
  5. TYLENOL  FORTE [Concomitant]

REACTIONS (6)
  - Fall [Unknown]
  - Spinal compression fracture [Unknown]
  - Arthralgia [Unknown]
  - Pain [Unknown]
  - Musculoskeletal stiffness [Unknown]
  - Malaise [Unknown]
